FAERS Safety Report 10577286 (Version 1)
Quarter: 2014Q4

REPORT INFORMATION
  Report Type: Spontaneous
  Country: GB (occurrence: GB)
  Receive Date: 20141111
  Receipt Date: 20141111
  Transmission Date: 20150529
  Serious: Yes (Hospitalization, Disabling)
  Sender: FDA-Public Use
  Company Number: GB-ASTRAZENECA-2014SE83794

PATIENT
  Age: 72 Year
  Sex: Female
  Weight: 93.7 kg

DRUGS (29)
  1. COLOMYCIN [Suspect]
     Active Substance: COLISTIN
     Indication: BACTERIAL DISEASE CARRIER
     Route: 042
     Dates: start: 201102, end: 20110216
  2. ALENDRONATE [Concomitant]
     Active Substance: ALENDRONATE SODIUM
     Route: 048
  3. PREDNISOLONE. [Concomitant]
     Active Substance: PREDNISOLONE
     Route: 048
  4. SERETIDE [Concomitant]
     Active Substance: FLUTICASONE FUROATE\SALMETEROL XINAFOATE
     Route: 055
  5. COLOMYCIN [Suspect]
     Active Substance: COLISTIN
     Indication: BRONCHIECTASIS
     Route: 042
     Dates: start: 20110204, end: 20110216
  6. COLOMYCIN [Suspect]
     Active Substance: COLISTIN
     Indication: BRONCHIECTASIS
     Route: 042
     Dates: start: 201102, end: 20110216
  7. COLOMYCIN [Suspect]
     Active Substance: COLISTIN
     Indication: BACTERIAL DISEASE CARRIER
     Route: 042
     Dates: start: 20110204, end: 201102
  8. ADCAL-D3 [Concomitant]
     Active Substance: CALCIUM CARBONATE\CHOLECALCIFEROL
     Route: 048
  9. AZITHROMYCIN [Concomitant]
     Active Substance: AZITHROMYCIN ANHYDROUS
     Route: 048
  10. HEPARIN SODIUM. [Concomitant]
     Active Substance: HEPARIN SODIUM
  11. TIOTROPIUM [Concomitant]
     Active Substance: TIOTROPIUM
     Route: 055
  12. CHLORPHENAMINE [Concomitant]
     Active Substance: CHLORPHENIRAMINE MALEATE
     Indication: ERYTHEMA
     Route: 048
  13. FUROSEMIDE. [Concomitant]
     Active Substance: FUROSEMIDE
     Route: 048
  14. IPRATROPIUM [Concomitant]
     Active Substance: IPRATROPIUM
     Route: 055
  15. LEKOVIT CA [Concomitant]
     Active Substance: CALCIUM CARBONATE\CHOLECALCIFEROL
     Route: 048
  16. MEROPENEM. [Suspect]
     Active Substance: MEROPENEM
     Indication: BRONCHIECTASIS
     Route: 042
     Dates: start: 20110215, end: 20110216
  17. CHLORPHENAMINE [Concomitant]
     Active Substance: CHLORPHENIRAMINE MALEATE
     Indication: PRURITUS
     Route: 048
  18. MEROPENEM. [Suspect]
     Active Substance: MEROPENEM
     Indication: BRONCHIECTASIS
     Route: 042
     Dates: start: 20110214, end: 20110214
  19. COLOMYCIN [Suspect]
     Active Substance: COLISTIN
     Indication: BRONCHIECTASIS
     Route: 042
     Dates: start: 20110204, end: 201102
  20. CARBOCISTEINE [Concomitant]
     Active Substance: CARBOCYSTEINE
     Route: 048
  21. CLOTRIMAZOLE. [Concomitant]
     Active Substance: CLOTRIMAZOLE
     Indication: CANDIDA INFECTION
     Dosage: AS NECESSARY
  22. SALBUTAMOL [Concomitant]
     Active Substance: ALBUTEROL
     Indication: WHEEZING
     Dosage: AS NECESSARY
     Route: 055
  23. COLOMYCIN [Suspect]
     Active Substance: COLISTIN
     Indication: BACTERIAL DISEASE CARRIER
     Route: 042
     Dates: start: 20110204, end: 20110216
  24. CHLORPHENAMINE [Concomitant]
     Active Substance: CHLORPHENIRAMINE MALEATE
     Indication: ERYTHEMA
     Route: 048
  25. HEPARIN SODIUM. [Concomitant]
     Active Substance: HEPARIN SODIUM
  26. MONTELUKAST [Concomitant]
     Active Substance: MONTELUKAST SODIUM
     Route: 048
  27. ALENDRONATE [Concomitant]
     Active Substance: ALENDRONATE SODIUM
     Route: 048
  28. CHLORPHENAMINE [Concomitant]
     Active Substance: CHLORPHENIRAMINE MALEATE
     Indication: PRURITUS
     Route: 048
  29. SERETIDE [Concomitant]
     Active Substance: FLUTICASONE FUROATE\SALMETEROL XINAFOATE
     Route: 055

REACTIONS (13)
  - Constipation [Unknown]
  - Headache [Recovered/Resolved]
  - Off label use [Recovered/Resolved]
  - Rash [Unknown]
  - Balance disorder [Not Recovered/Not Resolved]
  - Weight increased [Recovering/Resolving]
  - Decreased appetite [Unknown]
  - Secretion discharge [Unknown]
  - Dizziness [Unknown]
  - Fall [Not Recovered/Not Resolved]
  - Nausea [Unknown]
  - Medication error [Unknown]
  - Burning sensation [Unknown]

NARRATIVE: CASE EVENT DATE: 20110204
